FAERS Safety Report 6268043-3 (Version None)
Quarter: 2009Q3

REPORT INFORMATION
  Report Type: 
  Country: None (occurrence: None)
  Receive Date: 20090713
  Receipt Date: 20090628
  Transmission Date: 20100115
  Serious: Yes (Other)
  Sender: FDA-Public Use
  Company Number: GB-DEXPHARM-20090964

PATIENT
  Age: 70 Year
  Sex: Male

DRUGS (7)
  1. OMEPRAZOLE [Suspect]
     Dosage: ORAL
     Route: 048
  2. LEVETIRACETAM [Suspect]
     Indication: PROPHYLAXIS
     Dosage: 500 MG MILLIGRAM(S) SEP. DOSAGES / INTERVAL 2 IN 1 DAY, ORAL
     Route: 048
  3. ALLOPURINOL [Suspect]
     Dosage: TOTAL DAILY DOSE 100 MG MILLIGRAM(S), ORAL
     Route: 048
  4. HYDROCORTISONE [Concomitant]
  5. MAGNESIUM HYDROXIDE TAB [Concomitant]
  6. SENNA [Concomitant]
  7. VITAMIN B COMPLEX STRONG [Concomitant]

REACTIONS (1)
  - ALANINE AMINOTRANSFERASE INCREASED [None]
